FAERS Safety Report 7738282-0 (Version None)
Quarter: 2011Q3

REPORT INFORMATION
  Report Type: 
  Country: None (occurrence: None)
  Receive Date: 20110908
  Receipt Date: 20110901
  Transmission Date: 20111222
  Serious: Yes (Death, Hospitalization, Other)
  Sender: FDA-Public Use
  Company Number: DE-ACTELION-A-US2011-53479

PATIENT

DRUGS (2)
  1. DETRALEX [Concomitant]
  2. VENTAVIS [Suspect]
     Indication: PULMONARY EMBOLISM
     Dosage: UNK ?G, UNK
     Route: 055
     Dates: start: 20110719, end: 20110830

REACTIONS (3)
  - HAEMOPTYSIS [None]
  - DEATH [None]
  - DYSPNOEA [None]
